FAERS Safety Report 23258369 (Version 1)
Quarter: 2023Q4

REPORT INFORMATION
  Report Type: Spontaneous
  Country: RO (occurrence: RO)
  Receive Date: 20231204
  Receipt Date: 20231204
  Transmission Date: 20240110
  Serious: Yes (Other)
  Sender: FDA-Public Use
  Company Number: RO-ORPHANEU-2023007872

PATIENT

DRUGS (7)
  1. TEMOZOLOMIDE [Suspect]
     Active Substance: TEMOZOLOMIDE
     Indication: Neuroblastoma
     Dosage: 100 MG/M2/DAY, (DAY 1 TO 5)
     Dates: start: 202008
  2. DINUTUXIMAB BETA [Suspect]
     Active Substance: DINUTUXIMAB BETA
     Indication: Neuroblastoma
     Dosage: 20 MG/M2 PER DAY FOR 8 HOURS UNTIL 5 DAYS (100 MG/M2 IN 5 DAYS)
     Route: 041
     Dates: start: 202008
  3. IRINOTECAN [Suspect]
     Active Substance: IRINOTECAN
     Indication: Neuroblastoma
     Dosage: 50 MG/M2/DAY (DAY 1 TO 5)
     Dates: start: 202008
  4. MORPHINE [Concomitant]
     Active Substance: MORPHINE
     Indication: Paraesthesia
     Dosage: UNK
  5. MORPHINE [Concomitant]
     Active Substance: MORPHINE
     Indication: Rash macular
  6. MORPHINE [Concomitant]
     Active Substance: MORPHINE
     Indication: Product used for unknown indication
  7. GABAPENTIN [Concomitant]
     Active Substance: GABAPENTIN
     Indication: Product used for unknown indication
     Dosage: UNK

REACTIONS (8)
  - Neuropathy peripheral [Unknown]
  - Chills [Unknown]
  - Weight increased [Unknown]
  - Paraesthesia [Unknown]
  - Pyrexia [Unknown]
  - Rash macular [Unknown]
  - Rash [Unknown]
  - Off label use [Recovered/Resolved]

NARRATIVE: CASE EVENT DATE: 20200801
